FAERS Safety Report 5832197-0 (Version None)
Quarter: 2008Q3

REPORT INFORMATION
  Report Type: 
  Country: None (occurrence: None)
  Receive Date: 20080730
  Receipt Date: 20080729
  Transmission Date: 20090109
  Serious: Yes (Death)
  Sender: FDA-Public Use
  Company Number: 2008SP015372

PATIENT
  Age: 67 Year
  Sex: Female

DRUGS (2)
  1. PEG-INTRON [Suspect]
     Indication: HEPATITIS C
     Dosage: 50 MCG; QW; SC
     Route: 058
     Dates: start: 20080128, end: 20080616
  2. REBETOL [Suspect]
     Indication: HEPATITIS C
     Dosage: 600 MG; QD; PO
     Route: 048
     Dates: start: 20080128, end: 20080616

REACTIONS (2)
  - HAEMATEMESIS [None]
  - PULMONARY HAEMORRHAGE [None]
